FAERS Safety Report 15579893 (Version 1)
Quarter: 2018Q4

REPORT INFORMATION
  Report Type: Spontaneous
  Country: US (occurrence: US)
  Receive Date: 20181102
  Receipt Date: 20181102
  Transmission Date: 20190205
  Serious: No
  Sender: FDA-Public Use
  Company Number: None

PATIENT
  Age: 60 Year
  Sex: Female

DRUGS (12)
  1. PAXIL (PAROXETINE) 40MG TABLET [Concomitant]
     Dates: start: 20170118
  2. NEURONTIN (GABAPENTIN) 300MG CAPSULE [Concomitant]
     Dates: start: 20170118
  3. CLOTRIMAZOLE 1% CREAM [Concomitant]
     Dates: start: 20170215
  4. CLONAZEPAM 0.5MG TABLET [Concomitant]
     Dates: start: 20170118
  5. GILENYA [Concomitant]
     Active Substance: FINGOLIMOD HYDROCHLORIDE
     Dates: start: 20170120
  6. NAMENDA (MEMANTINE) 10MG TABLET [Concomitant]
     Dates: start: 20170313
  7. SIMVASTATIN 20MG TABLET [Concomitant]
     Active Substance: SIMVASTATIN
     Dates: start: 20170118
  8. DALFAMPRIDINE. [Suspect]
     Active Substance: DALFAMPRIDINE
     Indication: MULTIPLE SCLEROSIS
     Route: 048
  9. K-DUR 20MEQ TABLET [Concomitant]
     Dates: start: 20181005
  10. BACLOFEN 10MG TABLET [Concomitant]
     Active Substance: BACLOFEN
     Dates: start: 20170118
  11. TRILEPTAL 300MG TABLET [Concomitant]
     Dates: start: 20170118
  12. TOPIRAMATE 50MG TABLET [Concomitant]
     Dates: start: 20170118

REACTIONS (2)
  - Paraesthesia [None]
  - Product substitution issue [None]
